FAERS Safety Report 6842444-4 (Version None)
Quarter: 2010Q3

REPORT INFORMATION
  Report Type: 
  Country: None (occurrence: None)
  Receive Date: 20100714
  Receipt Date: 20070725
  Transmission Date: 20110219
  Serious: No
  Sender: FDA-Public Use
  Company Number: US-PFIZER INC-2007062655

PATIENT
  Sex: Female
  Weight: 65.3 kg

DRUGS (4)
  1. CHANTIX [Suspect]
     Indication: SMOKING CESSATION THERAPY
     Dates: start: 20070715
  2. AVALIDE [Concomitant]
  3. DRUG, UNSPECIFIED [Concomitant]
     Route: 055
  4. PRILOSEC [Concomitant]

REACTIONS (2)
  - CONSTIPATION [None]
  - NAUSEA [None]
